FAERS Safety Report 5161295-2 (Version None)
Quarter: 2006Q4

REPORT INFORMATION
  Report Type: 
  Country: None (occurrence: None)
  Receive Date: 20061130
  Receipt Date: 20061016
  Transmission Date: 20070319
  Serious: No
  Sender: FDA-Public Use
  Company Number: US-BRISTOL-MYERS SQUIBB COMPANY-13541586

PATIENT
  Age: 63 Year
  Sex: Female
  Weight: 115 kg

DRUGS (7)
  1. ERBITUX [Suspect]
     Indication: COLON CANCER METASTATIC
     Route: 042
     Dates: start: 20061002
  2. FLUOROURACIL [Concomitant]
  3. AVASTIN [Concomitant]
  4. LEUCOVORIN [Concomitant]
  5. BENADRYL [Concomitant]
     Indication: PREMEDICATION
  6. ANZEMET [Concomitant]
     Indication: PREMEDICATION
  7. PEPCID [Concomitant]
     Indication: PREMEDICATION

REACTIONS (1)
  - DERMATITIS ACNEIFORM [None]
